FAERS Safety Report 10992645 (Version 1)
Quarter: 2015Q2

REPORT INFORMATION
  Report Type: Spontaneous
  Country: US (occurrence: US)
  Receive Date: 20150406
  Receipt Date: 20150406
  Transmission Date: 20150821
  Serious: No
  Sender: FDA-Public Use
  Company Number: US-MALLINCKRODT-T201500818

PATIENT
  Age: 36 Year
  Sex: Female
  Weight: 64 kg

DRUGS (1)
  1. OPTIRAY [Suspect]
     Active Substance: IOVERSOL
     Indication: SCAN BRAIN
     Dosage: SINGLE
     Route: 042
     Dates: start: 20141113, end: 20141113

REACTIONS (8)
  - Heart rate increased [Recovered/Resolved]
  - Head discomfort [Recovered/Resolved]
  - Insomnia [Not Recovered/Not Resolved]
  - Headache [Recovering/Resolving]
  - Hypothyroidism [Not Recovered/Not Resolved]
  - Tremor [Recovered/Resolved]
  - Facial pain [Recovering/Resolving]
  - Anxiety [Recovering/Resolving]

NARRATIVE: CASE EVENT DATE: 20141113
